FAERS Safety Report 11967415 (Version 4)
Quarter: 2018Q2

REPORT INFORMATION
  Report Type: Spontaneous
  Country: US (occurrence: US)
  Receive Date: 20160127
  Receipt Date: 20180404
  Transmission Date: 20180711
  Serious: Yes (Other)
  Sender: FDA-Public Use
  Company Number: US-PFIZER INC-2016037251

PATIENT
  Age: 55 Year
  Sex: Male

DRUGS (4)
  1. SUTENT [Suspect]
     Active Substance: SUNITINIB MALATE
     Dosage: 25 MG, CYCLIC [DAILY 28 DAYS] [(OFF 2 WEEKS)]
     Route: 048
     Dates: start: 20180123
  2. SUTENT [Suspect]
     Active Substance: SUNITINIB MALATE
     Indication: RENAL CANCER
     Dosage: 25 MG, CYCLIC (QD 4 WKS ON OFF 2 WKS)
     Route: 048
     Dates: start: 20150101
  3. SUTENT [Suspect]
     Active Substance: SUNITINIB MALATE
     Indication: RENAL CANCER
     Dosage: 50 MG, 1X/DAY
     Route: 048
     Dates: start: 20151229
  4. SUTENT [Suspect]
     Active Substance: SUNITINIB MALATE
     Dosage: 25 MG, DAILY
     Route: 048

REACTIONS (19)
  - Dehydration [Unknown]
  - Fatigue [Unknown]
  - Dyspnoea [Unknown]
  - Stomatitis [Unknown]
  - Hair colour changes [Unknown]
  - Dizziness [Unknown]
  - Nausea [Unknown]
  - Blood pressure increased [Unknown]
  - Rash [Unknown]
  - Stomatitis [Not Recovered/Not Resolved]
  - Ageusia [Unknown]
  - Fluid retention [Unknown]
  - Chills [Unknown]
  - Diarrhoea [Unknown]
  - Dysgeusia [Unknown]
  - Headache [Not Recovered/Not Resolved]
  - Rash [Not Recovered/Not Resolved]
  - Myalgia [Not Recovered/Not Resolved]
  - Hypertension [Not Recovered/Not Resolved]

NARRATIVE: CASE EVENT DATE: 20150101
